FAERS Safety Report 20831291 (Version 1)
Quarter: 2022Q2

REPORT INFORMATION
  Report Type: Spontaneous
  Country: US (occurrence: US)
  Receive Date: 20220516
  Receipt Date: 20220516
  Transmission Date: 20220721
  Serious: Yes (Other)
  Sender: FDA-Public Use
  Company Number: US-MLMSERVICE-20220426-3521650-1

PATIENT
  Age: 57 Year
  Sex: Male

DRUGS (4)
  1. FLUOROURACIL [Suspect]
     Active Substance: FLUOROURACIL
     Indication: Rectal cancer stage III
     Dosage: 8 CYCLE
     Route: 065
  2. OXALIPLATIN [Suspect]
     Active Substance: OXALIPLATIN
     Indication: Rectal cancer stage III
     Dosage: OXALIPLATIN DOSE WAS REDUCED FROM 85 MG/M*2 TO 75 MG/M2 FOR CYCLE 4
     Route: 065
  3. OXALIPLATIN [Suspect]
     Active Substance: OXALIPLATIN
     Dosage: 255 MILLIGRAM/SQ. METER, 3 CYCLICAL
     Route: 065
  4. LEUCOVORIN [Concomitant]
     Active Substance: LEUCOVORIN
     Indication: Rectal cancer stage III
     Dosage: 8 CYCLE
     Route: 065

REACTIONS (7)
  - Radiculopathy [Recovering/Resolving]
  - Peripheral sensorimotor neuropathy [Recovering/Resolving]
  - Axonal and demyelinating polyneuropathy [Recovering/Resolving]
  - Myositis [Not Recovered/Not Resolved]
  - Deep vein thrombosis [Unknown]
  - Recall phenomenon [Not Recovered/Not Resolved]
  - Fall [Recovered/Resolved]
